FAERS Safety Report 25207061 (Version 1)
Quarter: 2025Q2

REPORT INFORMATION
  Report Type: Spontaneous
  Country: ES (occurrence: ES)
  Receive Date: 20250417
  Receipt Date: 20250417
  Transmission Date: 20250717
  Serious: Yes (Other)
  Sender: ALMUS
  Company Number: None

PATIENT
  Age: 86 Year
  Sex: Female

DRUGS (1)
  1. KLISYRI [Suspect]
     Active Substance: TIRBANIBULIN
     Indication: Actinic keratosis
     Dosage: 1/24H, 5 SACHETS OF 250 MG
     Route: 061
     Dates: start: 20250317, end: 20250321

REACTIONS (2)
  - Chemical burn of skin [Recovering/Resolving]
  - Photosensitivity reaction [Recovering/Resolving]

NARRATIVE: CASE EVENT DATE: 20250320
